FAERS Safety Report 23775921 (Version 1)
Quarter: 2024Q2

REPORT INFORMATION
  Report Type: Spontaneous
  Country: US (occurrence: US)
  Receive Date: 20240424
  Receipt Date: 20240424
  Transmission Date: 20240715
  Serious: No
  Sender: FDA-Public Use
  Company Number: US-HALEON-2168172

PATIENT

DRUGS (1)
  1. AQUAFRESH CAVITY PROTECTION (SODIUM FLUORIDE) [Suspect]
     Active Substance: SODIUM FLUORIDE
     Indication: Product used for unknown indication
     Dosage: EXPDATE:20250331

REACTIONS (1)
  - Skin laceration [Unknown]
